FAERS Safety Report 6188555-0 (Version None)
Quarter: 2009Q2

REPORT INFORMATION
  Report Type: 
  Country: None (occurrence: None)
  Receive Date: 20090513
  Receipt Date: 20090504
  Transmission Date: 20091009
  Serious: Yes (Hospitalization)
  Sender: FDA-Public Use
  Company Number: FR-ABBOTT-09P-056-0571398-00

PATIENT
  Age: 23 Year
  Sex: Male

DRUGS (2)
  1. HUMIRA [Suspect]
     Indication: CROHN'S DISEASE
     Route: 058
     Dates: start: 20080118, end: 20080628
  2. HUMIRA [Suspect]
     Route: 058
     Dates: start: 20080801, end: 20090302

REACTIONS (3)
  - LYMPH NODE PAIN [None]
  - LYMPHADENOPATHY [None]
  - NEUROPATHY PERIPHERAL [None]
